FAERS Safety Report 4601571-2 (Version None)
Quarter: 2005Q1

REPORT INFORMATION
  Report Type: 
  Country: None (occurrence: None)
  Receive Date: 20050131
  Receipt Date: 20041201
  Transmission Date: 20050727
  Serious: No
  Sender: FDA-Public Use
  Company Number: 200418582US

PATIENT
  Age: 26 Year
  Sex: Male

DRUGS (3)
  1. KETEK [Suspect]
     Indication: INFLUENZA
     Dosage: 400 (2 TABLETS) MG QD PO
     Route: 048
     Dates: start: 20041102, end: 20041104
  2. MOMETASONE FUROATE (NASONEX) [Concomitant]
  3. PSEUDOEPHEDRINE HCL [Concomitant]

REACTIONS (7)
  - ALTERED VISUAL DEPTH PERCEPTION [None]
  - MYDRIASIS [None]
  - THINKING ABNORMAL [None]
  - VERTIGO [None]
  - VISION BLURRED [None]
  - VISUAL BRIGHTNESS [None]
  - VISUAL DISTURBANCE [None]
